FAERS Safety Report 23171782 (Version 4)
Quarter: 2024Q2

REPORT INFORMATION
  Report Type: Report from Study
  Country: US (occurrence: US)
  Receive Date: 20231110
  Receipt Date: 20240405
  Transmission Date: 20240715
  Serious: Yes (Hospitalization, Other)
  Sender: FDA-Public Use
  Company Number: US-ARGENX-2023-ARGX-US003183

PATIENT

DRUGS (2)
  1. VYVGART HYTRULO [Suspect]
     Active Substance: EFGARTIGIMOD ALFA\HYALURONIDASE-QVFC
     Indication: Myasthenia gravis
     Dosage: UNK
     Route: 058
     Dates: start: 20230919
  2. VYVGART [Suspect]
     Active Substance: EFGARTIGIMOD ALFA-FCAB
     Indication: Myasthenia gravis
     Dosage: UNK
     Route: 042

REACTIONS (12)
  - Asthenia [Unknown]
  - Haemorrhage [Not Recovered/Not Resolved]
  - Heart rate increased [Unknown]
  - Haematological infection [Unknown]
  - Urinary tract infection [Unknown]
  - Urinary tract infection [Unknown]
  - Thrombosis [Unknown]
  - Eye pain [Unknown]
  - Procedural headache [Unknown]
  - Ulcer [Unknown]
  - Therapeutic procedure [Unknown]
  - Oedema peripheral [Unknown]

NARRATIVE: CASE EVENT DATE: 20230919
